FAERS Safety Report 10100946 (Version 1)
Quarter: 2014Q2

REPORT INFORMATION
  Report Type: Spontaneous
  Country: US (occurrence: US)
  Receive Date: 20140424
  Receipt Date: 20140424
  Transmission Date: 20141212
  Serious: No
  Sender: FDA-Public Use
  Company Number: US-009507513-1404USA011913

PATIENT
  Sex: Male

DRUGS (6)
  1. PEGINTRON [Suspect]
     Indication: HEPATITIS C
     Dosage: 0.5 ML, QW, REDIPEN
     Dates: start: 20120203, end: 20130104
  2. REBETOL [Suspect]
     Indication: HEPATITIS C
     Dosage: UNK, BID
     Route: 048
     Dates: start: 20120203, end: 20130104
  3. VICTRELIS [Suspect]
     Indication: HEPATITIS C
     Dosage: UNK, Q8H
     Route: 048
     Dates: start: 20120305, end: 20130104
  4. OMEPRAZOLE [Concomitant]
     Dosage: ONE TWICE A DAY
  5. NADOLOL [Concomitant]
     Dosage: 3 EVERY DAY
  6. CITALOPRAM [Concomitant]
     Dosage: I AND 1/2 TABS DAILY

REACTIONS (2)
  - Drug ineffective [Unknown]
  - Hepatitis C [Unknown]
